FAERS Safety Report 26126195 (Version 3)
Quarter: 2025Q4

REPORT INFORMATION
  Report Type: Report from Study
  Country: EU (occurrence: EU)
  Receive Date: 20251205
  Receipt Date: 20251229
  Transmission Date: 20260118
  Serious: Yes (Other)
  Sender: JOHNSON AND JOHNSON
  Company Number: EU-JNJFOC-20250807832

PATIENT
  Age: 75 Year
  Sex: Female

DRUGS (11)
  1. TECLISTAMAB [Suspect]
     Active Substance: TECLISTAMAB
     Indication: Plasma cell myeloma refractory
  2. TECLISTAMAB [Suspect]
     Active Substance: TECLISTAMAB
     Dates: start: 20250723, end: 20250901
  3. TECLISTAMAB [Suspect]
     Active Substance: TECLISTAMAB
  4. TECLISTAMAB [Suspect]
     Active Substance: TECLISTAMAB
  5. ACYCLOVIR [Concomitant]
     Active Substance: ACYCLOVIR
     Indication: Product used for unknown indication
  6. PANTOPRAZOLE SODIUM [Concomitant]
     Active Substance: PANTOPRAZOLE SODIUM
     Indication: Product used for unknown indication
  7. ERYTHROPOIETIN [Concomitant]
     Active Substance: ERYTHROPOIETIN
     Indication: Product used for unknown indication
  8. ASPIRIN [Concomitant]
     Active Substance: ASPIRIN
     Indication: Product used for unknown indication
  9. CANRENONE [Concomitant]
     Active Substance: CANRENONE
     Indication: Product used for unknown indication
  10. BACTRIM [Concomitant]
     Active Substance: SULFAMETHOXAZOLE\TRIMETHOPRIM
     Indication: Product used for unknown indication
  11. FILGRASTIM [Concomitant]
     Active Substance: FILGRASTIM
     Indication: Product used for unknown indication
     Dosage: 30 MU SUBCUTANEOUS VIALS - 1 SUBCUTANEOUS VIAL/DAY ONLY ON AUGUST 25, 26, 27

REACTIONS (9)
  - Hypogammaglobulinaemia [Recovered/Resolved]
  - Pancytopenia [Recovered/Resolved]
  - Neutropenia [Not Recovered/Not Resolved]
  - Thrombocytopenia [Not Recovered/Not Resolved]
  - Cytokine release syndrome [Unknown]
  - Plasma cell myeloma [Unknown]
  - Pyrexia [Recovered/Resolved]
  - Headache [Recovered/Resolved]
  - Gingival ulceration [Recovered/Resolved]

NARRATIVE: CASE EVENT DATE: 20250723
